FAERS Safety Report 21780968 (Version 3)
Quarter: 2023Q1

REPORT INFORMATION
  Report Type: Report from Study
  Country: HU (occurrence: HU)
  Receive Date: 20221227
  Receipt Date: 20230111
  Transmission Date: 20230418
  Serious: Yes (Hospitalization, Other)
  Sender: FDA-Public Use
  Company Number: HU-ABBVIE-4246103

PATIENT
  Sex: Male

DRUGS (19)
  1. CARBIDOPA\LEVODOPA [Suspect]
     Active Substance: CARBIDOPA\LEVODOPA
     Indication: Parkinson^s disease
     Dosage: MORNING DOSE: 6.0 ML; CONTINUOUS DOSE: 4.2 ML/HOUR; EXTRA DOSE: 3.0 ML
     Route: 050
     Dates: start: 20130328
  2. CARBIDOPA\LEVODOPA [Suspect]
     Active Substance: CARBIDOPA\LEVODOPA
  3. Bezalip (Bezafibrate) 400MG [Concomitant]
     Indication: Hyperlipidaemia
     Route: 048
     Dates: start: 201702
  4. Thiogamma (Thioctic acid) 600 MG [Concomitant]
     Indication: Diabetic neuropathy
     Dosage: 600 MILLIGRAM
     Route: 048
     Dates: start: 2017
  5. ATORVASTATIN [Concomitant]
     Active Substance: ATORVASTATIN
     Indication: Hyperlipidaemia
     Dosage: FREQUENCY TEXT: 1 TABLET IN THE EVENING
     Route: 048
  6. TAMSULOSIN [Concomitant]
     Active Substance: TAMSULOSIN
     Indication: Benign prostatic hyperplasia
     Route: 048
  7. Milurit (Allopurinol) 300MG [Concomitant]
     Indication: Hyperuricaemia
     Route: 048
  8. Bisoprolol-hexal (Bisoprolol fumarate) 5MG [Concomitant]
     Indication: Cardiac disorder
     Dosage: HALF TABLET DAILY
     Route: 048
  9. Pantoprazole (Pantoprazol) 20MG [Concomitant]
     Indication: Gastrooesophageal reflux disease
     Dosage: 40 MILLIGRAM
     Route: 048
     Dates: start: 2012
  10. Metfogamma (Metformin hydrochloride) 1000 MG [Concomitant]
     Indication: Diabetes mellitus
     Route: 048
  11. Nitroderm (Glyceryl trinitrate) 5MG [Concomitant]
     Indication: Myocardial ischaemia
     Dosage: 24 HOURS / PATCH?TTS
     Route: 062
     Dates: start: 201702
  12. ENOXAPARIN SODIUM [Concomitant]
     Active Substance: ENOXAPARIN SODIUM
     Indication: Prophylaxis
     Dosage: 4000 NE (40 MG)/0.4 ML /AMPOULE
     Route: 058
     Dates: start: 20220612
  13. Hypothiazid (Hydrochlorothiazide) 25MG [Concomitant]
     Indication: Hypertension
     Dosage: 25 MILLIGRAM
     Route: 048
  14. Stalevo (Carbidopa monohydrate;Entacapone;Levodopa) [Concomitant]
     Indication: Parkinson^s disease
     Dosage: 150 MG LEVODOPA, 37.5 MG CARBIDOPA AND 200 MG ENTACAPONE / TABLET?FREQUENCY TEXT: 1 TABLET AT NIG...
     Route: 048
  15. Meloxep (Meloxicam) 15MG [Concomitant]
     Indication: Product used for unknown indication
     Route: 048
  16. PREGABALIN [Concomitant]
     Active Substance: PREGABALIN
     Indication: Hypoaesthesia
     Dosage: STRENGTH- 150 MILLIGRAM
     Route: 048
     Dates: start: 20220126
  17. MIDERIZONE [Concomitant]
     Indication: Muscle spasms
     Dosage: STRENGTH- 300 MILLIGRAM
     Route: 048
     Dates: start: 201203
  18. Mirzaten (Mirtazapine) 30MG [Concomitant]
     Indication: Depression
     Dosage: FREQUENCY TEXT: 1 TABLET IN THE EVENING
     Route: 048
  19. Motilium (Domperidone) 10MG [Concomitant]
     Indication: Nausea
     Dosage: TIME INTERVAL: 0.33333333 DAYS: 30 MILLIGRAM
     Route: 048

REACTIONS (8)
  - Cervical spinal stenosis [Unknown]
  - Medical device site nodule [Unknown]
  - Device occlusion [Recovered/Resolved]
  - Device kink [Recovered/Resolved]
  - Hyperuricaemia [Unknown]
  - Hyperlipidaemia [Unknown]
  - Gynaecomastia [Unknown]
  - Diabetes mellitus [Unknown]

NARRATIVE: CASE EVENT DATE: 20150101
